FAERS Safety Report 5034297-4 (Version None)
Quarter: 2006Q2

REPORT INFORMATION
  Report Type: 
  Country: None (occurrence: None)
  Receive Date: 20060620
  Receipt Date: 20060612
  Transmission Date: 20061013
  Serious: Yes (Hospitalization)
  Sender: FDA-Public Use
  Company Number: GR200606002899

PATIENT
  Age: 64 Year
  Sex: Female

DRUGS (3)
  1. OLANZAPINE [Suspect]
     Indication: SCHIZOPHRENIA, PARANOID TYPE
  2. SERTRALINE [Concomitant]
  3. BENZHEXOL HYDROCHLORIDE (TRIHEXYPHENIDYL HYDROCHLORIDE) [Concomitant]

REACTIONS (2)
  - LEUKOCYTOCLASTIC VASCULITIS [None]
  - NORMOCHROMIC NORMOCYTIC ANAEMIA [None]
